FAERS Safety Report 4777769-X (Version None)
Quarter: 2005Q3

REPORT INFORMATION
  Report Type: 
  Country: None (occurrence: None)
  Receive Date: 20050922
  Receipt Date: 20050906
  Transmission Date: 20060218
  Serious: Yes (Hospitalization)
  Sender: FDA-Public Use
  Company Number: 2005-US-00086

PATIENT
  Sex: Female

DRUGS (1)
  1. ALBUTEROL [Suspect]
     Indication: ASTHMA

REACTIONS (1)
  - HEPATIC FUNCTION ABNORMAL [None]
